FAERS Safety Report 5710376 (Version 2)
Quarter: 2016Q1

REPORT INFORMATION
  Report Type: Spontaneous
  Country: IT (occurrence: IT)
  Receive Date: 20050107
  Receipt Date: 20160121
  Transmission Date: 20160526
  Serious: Yes (Hospitalization, Other)
  Sender: FDA-Public Use
  Company Number: IT-BRISTOL-MYERS SQUIBB COMPANY-12812632

PATIENT

DRUGS (1)
  1. AMPICILLIN SODIUM. [Suspect]
     Active Substance: AMPICILLIN SODIUM
     Indication: PRODUCT USED FOR UNKNOWN INDICATION
     Dosage: UNK
     Route: 064

REACTIONS (11)
  - Quadriplegia [Unknown]
  - Hypertonia [Unknown]
  - Pallor [Unknown]
  - Dyskinesia [Unknown]
  - Brain injury [Unknown]
  - Foetal exposure during pregnancy [Unknown]
  - Neurological symptom [Unknown]
  - Hypotonia [Recovering/Resolving]
  - Bradycardia [Recovered/Resolved]
  - Metabolic acidosis [Recovered/Resolved]
  - Seizure [Recovered/Resolved]
